FAERS Safety Report 8487142-9 (Version None)
Quarter: 2012Q3

REPORT INFORMATION
  Report Type: 
  Country: None (occurrence: None)
  Receive Date: 20120704
  Receipt Date: 20120622
  Transmission Date: 20120928
  Serious: Yes (Death, Other)
  Sender: FDA-Public Use
  Company Number: US-BRISTOL-MYERS SQUIBB COMPANY-16710535

PATIENT
  Age: 64 Year
  Sex: Male

DRUGS (1)
  1. AMPHOTERICIN B FOR INJECTION [Suspect]
     Indication: MENINGITIS COCCIDIOIDES
     Dosage: DOSE:0.375MG TO 0.5 MG PER INJ, ALSO RECEIVED INTRACISTERNAL
     Route: 037

REACTIONS (3)
  - MENINGITIS STAPHYLOCOCCAL [None]
  - MYELOPATHY [None]
  - PNEUMONIA ASPIRATION [None]
